FAERS Safety Report 13241926 (Version 1)
Quarter: 2017Q1

REPORT INFORMATION
  Report Type: Spontaneous
  Country: US (occurrence: US)
  Receive Date: 20170216
  Receipt Date: 20170216
  Transmission Date: 20170428
  Serious: Yes (Hospitalization)
  Sender: FDA-Public Use
  Company Number: None

PATIENT
  Age: 64 Year
  Sex: Male

DRUGS (16)
  1. PREDNISONE. [Concomitant]
     Active Substance: PREDNISONE
  2. AMLODIPINE [Concomitant]
     Active Substance: AMLODIPINE BESYLATE
  3. ACETAMIN [Concomitant]
     Active Substance: ACETAMINOPHEN
  4. MULTIVIT [Concomitant]
     Active Substance: VITAMINS
  5. FUROSEMIDE. [Concomitant]
     Active Substance: FUROSEMIDE
  6. ZYTIGA [Concomitant]
     Active Substance: ABIRATERONE ACETATE
  7. ECOTRIN [Concomitant]
     Active Substance: ASPIRIN
  8. TRAMADOL. [Concomitant]
     Active Substance: TRAMADOL
  9. HYDROCO [Concomitant]
  10. POTASSIUM [Concomitant]
     Active Substance: POTASSIUM
  11. XGEVA [Suspect]
     Active Substance: DENOSUMAB
     Indication: PROSTATE CANCER
     Dosage: 120MG Q 8 W SC
     Route: 058
     Dates: start: 20161108
  12. LUPRON DEPOT [Concomitant]
     Active Substance: LEUPROLIDE ACETATE
  13. LOSARTAN. [Concomitant]
     Active Substance: LOSARTAN
  14. MYRBETRIQ [Concomitant]
     Active Substance: MIRABEGRON
  15. CALCITRIOL. [Concomitant]
     Active Substance: CALCITRIOL
  16. LUPRON DEPOT [Suspect]
     Active Substance: LEUPROLIDE ACETATE
     Indication: PROSTATE CANCER
     Dosage: 45MG Q 6 M IM
     Route: 030
     Dates: start: 20160616

REACTIONS (1)
  - Myocardial infarction [None]

NARRATIVE: CASE EVENT DATE: 20170118
